FAERS Safety Report 20057802 (Version 4)
Quarter: 2022Q1

REPORT INFORMATION
  Report Type: Spontaneous
  Country: US (occurrence: US)
  Receive Date: 20211111
  Receipt Date: 20220128
  Transmission Date: 20220423
  Serious: Yes (Other)
  Sender: FDA-Public Use
  Company Number: US-PFIZER INC-202101375770

PATIENT
  Age: 58 Year
  Sex: Male
  Weight: 84.82 kg

DRUGS (1)
  1. VIAGRA [Suspect]
     Active Substance: SILDENAFIL CITRATE
     Indication: Erectile dysfunction
     Dosage: UNK

REACTIONS (3)
  - Erection increased [Not Recovered/Not Resolved]
  - Prescription drug used without a prescription [Unknown]
  - Off label use [Unknown]

NARRATIVE: CASE EVENT DATE: 20220113
